FAERS Safety Report 23144835 (Version 1)
Quarter: 2023Q4

REPORT INFORMATION
  Report Type: Spontaneous
  Country: CN (occurrence: CN)
  Receive Date: 20231103
  Receipt Date: 20231103
  Transmission Date: 20240109
  Serious: Yes (Hospitalization, Other)
  Sender: FDA-Public Use
  Company Number: CN-009507513-2311CHN000726

PATIENT
  Age: 72 Year
  Sex: Male

DRUGS (2)
  1. KEYTRUDA [Suspect]
     Active Substance: PEMBROLIZUMAB
     Dosage: 200 MILLIGRAM
     Route: 041
     Dates: start: 20230425, end: 20230425
  2. TRASTUZUMAB [Suspect]
     Active Substance: TRASTUZUMAB
     Indication: Targeted cancer therapy
     Dosage: 560 MILLIGRAM, ONCE
     Route: 041
     Dates: start: 20230425, end: 20230425

REACTIONS (2)
  - Drug-induced liver injury [Unknown]
  - Hepatic failure [Unknown]

NARRATIVE: CASE EVENT DATE: 20230926
